FAERS Safety Report 9388779 (Version 3)
Quarter: 2013Q4

REPORT INFORMATION
  Report Type: Spontaneous
  Country: DE (occurrence: DE)
  Receive Date: 20130708
  Receipt Date: 20131002
  Transmission Date: 20140711
  Serious: Yes (Hospitalization)
  Sender: FDA-Public Use
  Company Number: DE-GLAXOSMITHKLINE-D0080302A

PATIENT
  Age: 71 Year
  Sex: Male
  Weight: 67 kg

DRUGS (9)
  1. VOTRIENT [Suspect]
     Indication: METASTATIC RENAL CELL CARCINOMA
     Dosage: 400MG TWICE PER DAY
     Route: 048
     Dates: start: 20130527, end: 20130701
  2. JODID [Concomitant]
     Dosage: 200UG IN THE MORNING
     Route: 048
  3. ALFUZOSIN [Concomitant]
     Dosage: 10MG AT NIGHT
     Route: 048
  4. SIMVASTATIN [Concomitant]
     Dosage: 20MG AT NIGHT
     Route: 048
  5. PANTOPRAZOL [Concomitant]
     Dosage: 20MG AT NIGHT
     Route: 048
  6. RAMIPRIL [Concomitant]
     Dosage: 5MG TWICE PER DAY
     Route: 048
  7. ASS [Concomitant]
     Indication: CORONARY ARTERY DISEASE
     Dosage: 100MG PER DAY
     Route: 048
  8. BISOPROLOL [Concomitant]
     Indication: HYPERTENSION
     Dosage: 5MG IN THE MORNING
     Route: 048
  9. TOREM [Concomitant]
     Indication: HYPERTENSION
     Dosage: 5MG IN THE MORNING
     Route: 048

REACTIONS (7)
  - Blindness unilateral [Not Recovered/Not Resolved]
  - Visual field defect [Not Recovered/Not Resolved]
  - Ischaemic stroke [Unknown]
  - Cardiac ventricular thrombosis [Unknown]
  - Cardiac failure [Recovering/Resolving]
  - Hemianopia homonymous [Not Recovered/Not Resolved]
  - Enophthalmos [Not Recovered/Not Resolved]
